FAERS Safety Report 23969711 (Version 1)
Quarter: 2024Q2

REPORT INFORMATION
  Report Type: Report from Study
  Country: US (occurrence: US)
  Receive Date: 20240613
  Receipt Date: 20240613
  Transmission Date: 20240716
  Serious: Yes (Hospitalization)
  Sender: FDA-Public Use
  Company Number: US-ABBVIE-5798402

PATIENT
  Sex: Male

DRUGS (1)
  1. RESTASIS [Suspect]
     Active Substance: CYCLOSPORINE
     Indication: Product used for unknown indication
     Dosage: 0.05%?FORM STRENGTH: 0.5MG/ML EMULSION?FREQUENCY: ONE DROP BOTH EYES TWICE PER DAY
     Route: 047

REACTIONS (3)
  - Eye infection [Unknown]
  - Eyelid margin crusting [Unknown]
  - Eye disorder [Unknown]
